FAERS Safety Report 8816135 (Version 1)
Quarter: 2012Q4

REPORT INFORMATION
  Report Type: 
  Country: CO (occurrence: CO)
  Receive Date: 20120929
  Receipt Date: 20120929
  Transmission Date: 20130627
  Serious: Yes (Hospitalization)
  Sender: FDA-Public Use
  Company Number: CO-ACCORD-014753

PATIENT
  Age: 42 Year
  Sex: Male

DRUGS (6)
  1. TOPIRAMATE [Suspect]
     Indication: EPILEPSY
  2. PHENOBARBITAL [Interacting]
     Indication: EPILEPSY
     Dosage: 1400 mg loading dose and later 200 mg /day
  3. VALPROIC ACID [Interacting]
     Indication: EPILEPSY
     Dosage: Loading IV of 1500 mg, followed of 500 mg every 6 h
     Route: 042
  4. LEVETIRACETAM [Concomitant]
     Indication: EPILEPSY
  5. MIDAZOLAM [Concomitant]
     Indication: SEIZURE
  6. PHENYTOIN [Concomitant]
     Indication: SEIZURE

REACTIONS (2)
  - Hyperammonaemic encephalopathy [Recovering/Resolving]
  - Drug interaction [Unknown]
